FAERS Safety Report 22337900 (Version 1)
Quarter: 2023Q2

REPORT INFORMATION
  Report Type: Spontaneous
  Country: CN (occurrence: CN)
  Receive Date: 20230518
  Receipt Date: 20230518
  Transmission Date: 20230722
  Serious: Yes (Life-Threatening)
  Sender: FDA-Public Use
  Company Number: CN-BAYER-2023A068522

PATIENT
  Age: 88 Year
  Sex: Male
  Weight: 76 kg

DRUGS (2)
  1. GLUCOBAY [Interacting]
     Active Substance: ACARBOSE
     Indication: Type 2 diabetes mellitus
     Dosage: 50 MG, TID
     Route: 048
     Dates: start: 20230503, end: 20230504
  2. REPAGLINIDE [Interacting]
     Active Substance: REPAGLINIDE
     Indication: Type 2 diabetes mellitus
     Dosage: 0.5 MG, TID
     Route: 048
     Dates: start: 20230503, end: 20230504

REACTIONS (2)
  - Hypoglycaemia [Recovering/Resolving]
  - Slow response to stimuli [None]

NARRATIVE: CASE EVENT DATE: 20230504
